APPROVED DRUG PRODUCT: CHOLETEC
Active Ingredient: TECHNETIUM TC-99M MEBROFENIN KIT
Strength: N/A
Dosage Form/Route: INJECTABLE;INJECTION
Application: N018963 | Product #001 | TE Code: AP
Applicant: BRACCO DIAGNOSTICS INC
Approved: Jan 21, 1987 | RLD: Yes | RS: Yes | Type: RX